FAERS Safety Report 5600371-4 (Version None)
Quarter: 2008Q1

REPORT INFORMATION
  Report Type: 
  Country: None (occurrence: None)
  Receive Date: 20080123
  Receipt Date: 20080114
  Transmission Date: 20080703
  Serious: Yes (Disabling, Other)
  Sender: FDA-Public Use
  Company Number: US-ALLERGAN-0800471US

PATIENT
  Sex: Female

DRUGS (21)
  1. BOTOX [Suspect]
     Indication: BLEPHAROSPASM
     Dosage: 60 UNITS, SINGLE
     Route: 030
     Dates: start: 20071106, end: 20071106
  2. TOPAMAX [Concomitant]
     Indication: DRUG USE FOR UNKNOWN INDICATION
  3. TRAZODONE HCL [Concomitant]
     Indication: DRUG USE FOR UNKNOWN INDICATION
  4. XANAX [Concomitant]
     Indication: DRUG USE FOR UNKNOWN INDICATION
  5. CELEBREX [Concomitant]
     Indication: DRUG USE FOR UNKNOWN INDICATION
  6. VALTREX [Concomitant]
     Indication: DRUG USE FOR UNKNOWN INDICATION
  7. POTASSIUM CHLORIDE [Concomitant]
     Indication: DRUG USE FOR UNKNOWN INDICATION
  8. ASPIRIN [Concomitant]
     Indication: DRUG USE FOR UNKNOWN INDICATION
  9. CALCIUM GLUCONATE [Concomitant]
     Indication: DRUG USE FOR UNKNOWN INDICATION
  10. VITAMIN D3 [Concomitant]
     Indication: DRUG USE FOR UNKNOWN INDICATION
  11. VIVELLE-DOT [Concomitant]
     Indication: DRUG USE FOR UNKNOWN INDICATION
  12. FERROUS SULFATE [Concomitant]
     Indication: DRUG USE FOR UNKNOWN INDICATION
  13. FLUTICASONE PROPIONATE [Concomitant]
     Indication: DRUG USE FOR UNKNOWN INDICATION
  14. DILAUDID [Concomitant]
     Indication: MIGRAINE
  15. NARDIL [Concomitant]
     Indication: DRUG USE FOR UNKNOWN INDICATION
  16. ACIDOPHILUS [Concomitant]
     Indication: DRUG USE FOR UNKNOWN INDICATION
  17. LAMICTAL [Concomitant]
     Indication: DRUG USE FOR UNKNOWN INDICATION
  18. MULTI-VITAMIN [Concomitant]
     Indication: DRUG USE FOR UNKNOWN INDICATION
  19. LORAZEPAM [Concomitant]
     Indication: DRUG USE FOR UNKNOWN INDICATION
  20. REFRESH P.M. [Concomitant]
     Indication: DRUG USE FOR UNKNOWN INDICATION
     Route: 047
  21. REFRESH PLUS [Concomitant]
     Indication: DRUG USE FOR UNKNOWN INDICATION
     Route: 047

REACTIONS (7)
  - DEPRESSION [None]
  - DRY EYE [None]
  - FATIGUE [None]
  - LAGOPHTHALMOS [None]
  - MALAISE [None]
  - OCULAR HYPERAEMIA [None]
  - PAIN [None]
